FAERS Safety Report 11318124 (Version 1)
Quarter: 2015Q3

REPORT INFORMATION
  Report Type: Spontaneous
  Country: FR (occurrence: FR)
  Receive Date: 20150728
  Receipt Date: 20150728
  Transmission Date: 20151125
  Serious: Yes (Life-Threatening, Other)
  Sender: FDA-Public Use
  Company Number: FR-BAXTER-2015BAX039472

PATIENT
  Age: 41 Year
  Sex: Female

DRUGS (15)
  1. CISPLATINE MYLAN [Suspect]
     Active Substance: CISPLATIN
     Route: 042
     Dates: start: 20150601, end: 20150601
  2. ETOPOPHOS [Suspect]
     Active Substance: ETOPOSIDE PHOSPHATE
     Indication: COLORECTAL CANCER METASTATIC
     Route: 042
     Dates: start: 20150508, end: 20150508
  3. ESOMEPRAZOLE [Concomitant]
     Active Substance: ESOMEPRAZOLE
     Indication: PRODUCT USED FOR UNKNOWN INDICATION
     Route: 065
  4. LEVOTHYROX [Concomitant]
     Active Substance: LEVOTHYROXINE
     Indication: PRODUCT USED FOR UNKNOWN INDICATION
     Route: 065
  5. CISPLATINE MYLAN [Suspect]
     Active Substance: CISPLATIN
     Indication: COLORECTAL CANCER METASTATIC
     Route: 042
     Dates: start: 20150507, end: 20150507
  6. TRAMADOL. [Concomitant]
     Active Substance: TRAMADOL
     Indication: PRODUCT USED FOR UNKNOWN INDICATION
     Route: 065
  7. ENDOXAN 1000 MG, POUDRE POUR SOLUTION INJECTABLE [Suspect]
     Active Substance: CYCLOPHOSPHAMIDE
     Indication: COLORECTAL CANCER METASTATIC
     Route: 042
     Dates: start: 20150508, end: 20150508
  8. METHYLPREDNISOLONE. [Concomitant]
     Active Substance: METHYLPREDNISOLONE
     Indication: PREMEDICATION
     Route: 042
     Dates: start: 20150507, end: 20150601
  9. ENDOXAN 1000 MG, POUDRE POUR SOLUTION INJECTABLE [Suspect]
     Active Substance: CYCLOPHOSPHAMIDE
     Route: 042
     Dates: start: 20150602, end: 20150602
  10. ETOPOSIDE MYLAN [Suspect]
     Active Substance: ETOPOSIDE
     Indication: COLORECTAL CANCER METASTATIC
     Route: 042
     Dates: start: 20150507, end: 20150507
  11. ETOPOPHOS [Suspect]
     Active Substance: ETOPOSIDE PHOSPHATE
     Route: 042
     Dates: start: 20150602, end: 20150602
  12. DOXORUBICINE ACCORD [Suspect]
     Active Substance: DOXORUBICIN
     Indication: COLORECTAL CANCER METASTATIC
     Route: 042
     Dates: start: 20150507, end: 20150507
  13. DOXORUBICINE ACCORD [Suspect]
     Active Substance: DOXORUBICIN
     Route: 042
     Dates: start: 20150601, end: 20150601
  14. ONDANSETRON [Concomitant]
     Active Substance: ONDANSETRON
     Indication: PREMEDICATION
     Route: 042
     Dates: start: 20150507, end: 20150601
  15. APREPITANT. [Concomitant]
     Active Substance: APREPITANT
     Indication: PREMEDICATION
     Route: 048
     Dates: start: 20150507, end: 20150603

REACTIONS (4)
  - Febrile bone marrow aplasia [Recovered/Resolved]
  - Genital herpes [Unknown]
  - Oral fungal infection [Unknown]
  - Aplasia [Recovered/Resolved]

NARRATIVE: CASE EVENT DATE: 20150516
